FAERS Safety Report 12179484 (Version 1)
Quarter: 2016Q1

REPORT INFORMATION
  Report Type: Report from Study
  Country: US (occurrence: US)
  Receive Date: 20160315
  Receipt Date: 20160315
  Transmission Date: 20160526
  Serious: Yes (Other)
  Sender: FDA-Public Use
  Company Number: US-SUN PHARMACEUTICAL INDUSTRIES LTD-2015US-110461

PATIENT
  Age: 16 Year
  Sex: Female

DRUGS (1)
  1. TOPIRAMATE. [Suspect]
     Active Substance: TOPIRAMATE
     Indication: MIGRAINE
     Dosage: 50 MG, BID
     Route: 065

REACTIONS (10)
  - Self-induced vomiting [Unknown]
  - Amenorrhoea [Unknown]
  - Weight decreased [Unknown]
  - Temperature intolerance [Unknown]
  - Constipation [Unknown]
  - Anorexia nervosa [Unknown]
  - Dizziness [Unknown]
  - Abdominal pain [Unknown]
  - Fatigue [Unknown]
  - Orthostatic intolerance [Unknown]
